FAERS Safety Report 9797970 (Version 2)
Quarter: 2014Q1

REPORT INFORMATION
  Report Type: Report from Study
  Country: CA (occurrence: CA)
  Receive Date: 20140106
  Receipt Date: 20140107
  Transmission Date: 20141002
  Serious: Yes (Other)
  Sender: FDA-Public Use
  Company Number: PHHY2014CA000723

PATIENT
  Sex: Female

DRUGS (4)
  1. GILENYA [Suspect]
     Indication: RELAPSING-REMITTING MULTIPLE SCLEROSIS
     Dosage: 0.5 MG, QD
     Route: 048
     Dates: start: 20120710
  2. ESTRIOL [Concomitant]
  3. BACLOFEN [Concomitant]
     Dosage: UNK UKN, BID
  4. DITROPAN [Concomitant]
     Dosage: UNK UKN, PRN

REACTIONS (2)
  - Central nervous system lesion [Recovered/Resolved]
  - Drug ineffective [Unknown]
